FAERS Safety Report 8136236-6 (Version None)
Quarter: 2012Q1

REPORT INFORMATION
  Report Type: 
  Country: None (occurrence: None)
  Receive Date: 20120214
  Receipt Date: 20120209
  Transmission Date: 20120608
  Serious: Yes (Death)
  Sender: FDA-Public Use
  Company Number: GB-ROCHE-1031271

PATIENT
  Sex: Male

DRUGS (8)
  1. LISINOPRIL [Concomitant]
  2. AMLODIPINE [Concomitant]
  3. SIMVASTATIN [Concomitant]
  4. LUCENTIS [Suspect]
     Indication: AGE-RELATED MACULAR DEGENERATION
     Route: 050
     Dates: start: 20111209
  5. GLICLAZIDE [Concomitant]
  6. ASPIRIN [Concomitant]
  7. METFORMIN HCL [Concomitant]
  8. FINASTERIDE [Concomitant]

REACTIONS (4)
  - ARRHYTHMIA [None]
  - CARDIAC FAILURE CONGESTIVE [None]
  - MYOCARDIAL INFARCTION [None]
  - CARDIO-RESPIRATORY ARREST [None]
